FAERS Safety Report 23589526 (Version 1)
Quarter: 2024Q1

REPORT INFORMATION
  Report Type: Spontaneous
  Country: RU (occurrence: RU)
  Receive Date: 20240304
  Receipt Date: 20240304
  Transmission Date: 20240410
  Serious: Yes (Hospitalization, Other)
  Sender: FDA-Public Use
  Company Number: RU-ENDO PHARMACEUTICALS INC-2024-001164

PATIENT
  Age: 49 Year
  Sex: Female
  Weight: 100 kg

DRUGS (5)
  1. EDEX [Suspect]
     Active Substance: ALPROSTADIL
     Indication: Arterial insufficiency
     Dosage: 60 MICROGRAM, OD (BY DROP INFUSION, VASAPROSTAN POWDER FOR SOLUTION FOR INJECTION)
     Route: 042
     Dates: start: 20240206, end: 20240216
  2. EDEX [Suspect]
     Active Substance: ALPROSTADIL
     Indication: Arterial insufficiency
     Dosage: 60 MICROGRAM, OD (BY DROP INFUSION, VASAPROSTAN POWDER FOR SOLUTION FOR INJECTION)
     Route: 042
     Dates: start: 20240206, end: 20240216
  3. EDEX [Suspect]
     Active Substance: ALPROSTADIL
     Indication: Arterial insufficiency
     Dosage: 60 MICROGRAM, OD (BY DROP INFUSION, VASAPROSTAN POWDER FOR SOLUTION FOR INJECTION)
     Route: 042
     Dates: start: 20240206, end: 20240216
  4. EDEX [Suspect]
     Active Substance: ALPROSTADIL
     Indication: Arterial insufficiency
     Dosage: 60 MICROGRAM, OD (BY DROP INFUSION, VASAPROSTAN POWDER FOR SOLUTION FOR INJECTION)
     Route: 042
     Dates: start: 20240206, end: 20240216
  5. EDEX [Suspect]
     Active Substance: ALPROSTADIL
     Indication: Arterial insufficiency
     Dosage: 60 MICROGRAM, OD (BY DROP INFUSION, VASAPROSTAN POWDER FOR SOLUTION FOR INJECTION)
     Route: 042
     Dates: start: 20240206, end: 20240216

REACTIONS (1)
  - Atrial fibrillation [Not Recovered/Not Resolved]

NARRATIVE: CASE EVENT DATE: 20240216
